FAERS Safety Report 9298206 (Version 1)
Quarter: 2013Q2

REPORT INFORMATION
  Report Type: Spontaneous
  Country: SE (occurrence: SE)
  Receive Date: 20130520
  Receipt Date: 20130520
  Transmission Date: 20140414
  Serious: Yes (Other)
  Sender: FDA-Public Use
  Company Number: SE-ROCHE-1218976

PATIENT
  Age: 49 Year
  Sex: Female
  Weight: 48 kg

DRUGS (5)
  1. AVASTIN [Suspect]
     Indication: OVARIAN CANCER
     Route: 065
     Dates: start: 20130122, end: 20130306
  2. PACLITAXEL [Suspect]
     Indication: OVARIAN CANCER
     Route: 065
     Dates: start: 20130115, end: 20130410
  3. CARBOPLATIN [Suspect]
     Indication: OVARIAN CANCER
     Route: 065
  4. NEXIUM [Concomitant]
     Indication: GASTRITIS
     Route: 065
     Dates: start: 20130110
  5. MATRIFEN [Concomitant]
     Indication: PAIN
     Route: 065
     Dates: start: 20130113

REACTIONS (1)
  - Skin toxicity [Unknown]
